FAERS Safety Report 19079090 (Version 1)
Quarter: 2021Q1

REPORT INFORMATION
  Report Type: Spontaneous
  Country: CA (occurrence: CA)
  Receive Date: 20210331
  Receipt Date: 20210331
  Transmission Date: 20210420
  Serious: Yes (Death, Hospitalization, Other)
  Sender: FDA-Public Use
  Company Number: CA-VALIDUS PHARMACEUTICALS LLC-CA-2021VAL000897

PATIENT
  Age: 87 Year
  Sex: Male

DRUGS (4)
  1. ADEMPAS [Suspect]
     Active Substance: RIOCIGUAT
     Indication: PULMONARY ARTERIAL HYPERTENSION
     Route: 065
  2. RAMIPRIL. [Concomitant]
     Active Substance: RAMIPRIL
     Indication: PRODUCT USED FOR UNKNOWN INDICATION
     Dosage: UNK
     Dates: start: 2017
  3. FUROSEMIDE. [Suspect]
     Active Substance: FUROSEMIDE
     Indication: HYPERTENSION
     Dosage: 20 MG, QD
     Route: 065
     Dates: start: 2017, end: 2017
  4. ADEMPAS [Suspect]
     Active Substance: RIOCIGUAT
     Indication: PULMONARY ARTERIAL HYPERTENSION
     Dosage: 2 MG, TID
     Route: 048
     Dates: start: 2017

REACTIONS (11)
  - Lethargy [Fatal]
  - Blood pressure diastolic decreased [Fatal]
  - Death [Fatal]
  - Dermatitis contact [Fatal]
  - Poor quality sleep [Fatal]
  - Blood creatinine increased [Fatal]
  - Erythema [Fatal]
  - Renal disorder [Fatal]
  - Cardiac failure congestive [Fatal]
  - Dyspnoea [Fatal]
  - Hypersomnia [Fatal]

NARRATIVE: CASE EVENT DATE: 2017
